FAERS Safety Report 13893479 (Version 1)
Quarter: 2017Q3

REPORT INFORMATION
  Report Type: Spontaneous
  Country: US (occurrence: US)
  Receive Date: 20170822
  Receipt Date: 20170822
  Transmission Date: 20171127
  Serious: Yes (Other)
  Sender: FDA-Public Use
  Company Number: US-BAYER-2017-151257

PATIENT
  Age: 18 Year
  Sex: Male
  Weight: 53 kg

DRUGS (2)
  1. MARIHUANA [Concomitant]
     Active Substance: CANNABIS SATIVA SUBSP. SATIVA FLOWERING TOP
     Dosage: UNK
  2. CORICIDIN HBP COUGH AND COLD [Suspect]
     Active Substance: CHLORPHENIRAMINE MALEATE\DEXTROMETHORPHAN HYDROBROMIDE
     Indication: DRUG ABUSE
     Dosage: 16 DF, ONCE
     Route: 048
     Dates: start: 20170807

REACTIONS (3)
  - Feeling abnormal [Unknown]
  - Drug abuse [Unknown]
  - Hallucination [Unknown]

NARRATIVE: CASE EVENT DATE: 20170807
